FAERS Safety Report 10144204 (Version 2)
Quarter: 2014Q2

REPORT INFORMATION
  Report Type: Spontaneous
  Country: JP (occurrence: JP)
  Receive Date: 20140430
  Receipt Date: 20140509
  Transmission Date: 20141212
  Serious: Yes (Death, Hospitalization)
  Sender: FDA-Public Use
  Company Number: PHHY2014JP050297

PATIENT
  Age: 63 Year
  Sex: Male

DRUGS (3)
  1. 5-FLUOROURACIL [Suspect]
     Indication: RECTAL CANCER METASTATIC
  2. OXALIPLATIN [Suspect]
     Indication: RECTAL CANCER METASTATIC
  3. LEUCOVORIN CALCIUM [Suspect]
     Indication: RECTAL CANCER METASTATIC

REACTIONS (9)
  - Rectal cancer metastatic [Fatal]
  - Condition aggravated [Fatal]
  - Haemorrhage [Unknown]
  - Thrombocytopenia [Unknown]
  - Leukopenia [Unknown]
  - Wound infection [Unknown]
  - Anorectal infection [Unknown]
  - Malignant neoplasm progression [Unknown]
  - Drug effect incomplete [Unknown]
